APPROVED DRUG PRODUCT: HYDROXYZINE HYDROCHLORIDE
Active Ingredient: HYDROXYZINE HYDROCHLORIDE
Strength: 25MG
Dosage Form/Route: TABLET;ORAL
Application: A091176 | Product #002
Applicant: RISING PHARMA HOLDING INC
Approved: Jun 7, 2010 | RLD: No | RS: No | Type: DISCN